FAERS Safety Report 7476335-5 (Version None)
Quarter: 2011Q2

REPORT INFORMATION
  Report Type: 
  Country: None (occurrence: None)
  Receive Date: 20110512
  Receipt Date: 20110503
  Transmission Date: 20111010
  Serious: Yes (Hospitalization)
  Sender: FDA-Public Use
  Company Number: A0784710A

PATIENT
  Age: 49 Year
  Sex: Female
  Weight: 115.5 kg

DRUGS (1)
  1. AVANDIA [Suspect]
     Indication: DIABETES MELLITUS
     Dosage: 8MG PER DAY
     Route: 048
     Dates: start: 20030201, end: 20061001

REACTIONS (6)
  - GAIT DISTURBANCE [None]
  - CARDIAC FAILURE CONGESTIVE [None]
  - WEIGHT INCREASED [None]
  - DYSPNOEA [None]
  - CARDIOMYOPATHY [None]
  - SWELLING [None]
